FAERS Safety Report 6702979-1 (Version None)
Quarter: 2010Q2

REPORT INFORMATION
  Report Type: 
  Country: None (occurrence: None)
  Receive Date: 20100429
  Receipt Date: 20100421
  Transmission Date: 20101027
  Serious: Yes (Hospitalization)
  Sender: FDA-Public Use
  Company Number: US-GILEAD-2010-0028786

PATIENT
  Sex: Female
  Weight: 69.916 kg

DRUGS (9)
  1. LETAIRIS [Suspect]
     Indication: PULMONARY ARTERIAL HYPERTENSION
     Route: 048
  2. ASPIRIN [Concomitant]
  3. ISOSORBIDE MONO [Concomitant]
  4. DILTIAZEM HCL [Concomitant]
  5. ADVAIR DISKU [Concomitant]
  6. XYZAL [Concomitant]
  7. PREDNISOLONE [Concomitant]
  8. FOLIC ACID [Concomitant]
  9. CENTRUM SILVER [Concomitant]

REACTIONS (6)
  - DECREASED APPETITE [None]
  - DIZZINESS [None]
  - DYSPNOEA [None]
  - PYREXIA [None]
  - VISION BLURRED [None]
  - WEIGHT DECREASED [None]
